FAERS Safety Report 23785089 (Version 1)
Quarter: 2024Q2

REPORT INFORMATION
  Report Type: Spontaneous
  Country: US (occurrence: US)
  Receive Date: 20240425
  Receipt Date: 20240425
  Transmission Date: 20240716
  Serious: Yes (Other)
  Sender: FDA-Public Use
  Company Number: US-NOVOPROD-1103060

PATIENT

DRUGS (2)
  1. TRESIBA [Suspect]
     Active Substance: INSULIN DEGLUDEC
     Indication: Product used for unknown indication
     Dosage: UNK
     Route: 058
  2. NOVOLOG [Suspect]
     Active Substance: INSULIN ASPART
     Indication: Product used for unknown indication
     Dosage: 3 UNITS AT 6:00PM, 8:00 PM, 2 UNITS AT 1:00 AM , 4 UNITS AT  5:00 AM, 8 UNITS IN THE MORNING
     Route: 058

REACTIONS (2)
  - Dementia [Unknown]
  - Blood glucose increased [Unknown]
